FAERS Safety Report 7474805-7 (Version None)
Quarter: 2011Q2

REPORT INFORMATION
  Report Type: 
  Country: None (occurrence: None)
  Receive Date: 20110512
  Receipt Date: 20101229
  Transmission Date: 20111010
  Serious: Yes (Hospitalization, Other)
  Sender: FDA-Public Use
  Company Number: US-BAYER-201036936NA

PATIENT
  Age: 27 Year
  Sex: Female
  Weight: 79 kg

DRUGS (12)
  1. BUSPIRONE HCL [Concomitant]
     Indication: ANXIETY
     Dosage: UNK
     Dates: start: 20080314, end: 20080328
  2. MOTRIN [Concomitant]
     Dosage: UNK
     Dates: start: 19900101
  3. CARVEDILOL [Concomitant]
     Dosage: UNK
     Dates: start: 20080101
  4. YAZ [Suspect]
     Indication: CONTRACEPTION
     Dosage: THE PATIENT WAS GIVEN NUMEROUS SAMPLES BETWEEN NOV 2007-NOV2008. APPROXIMATELY 3 MONTHS OF SAMPLES
     Route: 048
     Dates: start: 20071110, end: 20081125
  5. ADVIL LIQUI-GELS [Concomitant]
     Dosage: UNK
     Dates: start: 19900101
  6. YAZ [Suspect]
     Indication: PREMENSTRUAL SYNDROME
  7. YAZ [Suspect]
  8. NAPROXEN [Concomitant]
     Dosage: UNK
     Dates: start: 20080301
  9. LEVOTHYROXINE SODIUM [Concomitant]
     Indication: AUTOIMMUNE THYROIDITIS
     Dosage: UNK
     Dates: start: 20080101
  10. IBUPROFEN [Concomitant]
     Dosage: UNK
     Dates: start: 19900101
  11. KETOROLAC TROMETHAMINE [Concomitant]
     Dosage: UNK
     Dates: start: 20080315
  12. METFORMIN HCL [Concomitant]
     Dosage: UNK
     Dates: start: 20080529

REACTIONS (5)
  - CHOLECYSTITIS CHRONIC [None]
  - OBSESSIVE-COMPULSIVE DISORDER [None]
  - ANXIETY [None]
  - GALLBLADDER DISORDER [None]
  - DEPRESSION [None]
